FAERS Safety Report 12184462 (Version 1)
Quarter: 2016Q1

REPORT INFORMATION
  Report Type: Spontaneous
  Country: AR (occurrence: AR)
  Receive Date: 20160316
  Receipt Date: 20160316
  Transmission Date: 20160526
  Serious: Yes (Other)
  Sender: FDA-Public Use
  Company Number: AR-PFIZER INC-2016151584

PATIENT
  Age: 39 Year
  Sex: Male

DRUGS (7)
  1. METFORMIN [Concomitant]
     Active Substance: METFORMIN HYDROCHLORIDE
     Dosage: UNK
  2. PEGVISOMANT [Suspect]
     Active Substance: PEGVISOMANT
     Dosage: 15 MG, ALTERNATE DAY
     Dates: start: 201303
  3. PEGVISOMANT [Suspect]
     Active Substance: PEGVISOMANT
     Dosage: UNK
     Dates: start: 201308
  4. LANREOTIDE [Suspect]
     Active Substance: LANREOTIDE
     Dosage: UNK
     Dates: start: 201308
  5. ATENOLOL. [Concomitant]
     Active Substance: ATENOLOL
     Dosage: 25 MG, DAILY
  6. LANREOTIDE [Suspect]
     Active Substance: LANREOTIDE
     Dosage: 120 MG, MONTHLY
     Dates: start: 2012
  7. ENALAPRIL [Concomitant]
     Active Substance: ENALAPRIL
     Dosage: 10 MG, DAILY

REACTIONS (1)
  - Hepatitis cholestatic [Recovered/Resolved]
